FAERS Safety Report 12221523 (Version 6)
Quarter: 2016Q2

REPORT INFORMATION
  Report Type: Report from Study
  Country: BE (occurrence: BE)
  Receive Date: 20160330
  Receipt Date: 20160519
  Transmission Date: 20160815
  Serious: Yes (Hospitalization, Other)
  Sender: FDA-Public Use
  Company Number: BE-BAYER-2016-031076

PATIENT
  Sex: Male

DRUGS (12)
  1. INUVAIR [Concomitant]
     Active Substance: BECLOMETHASONE DIPROPIONATE\FORMOTEROL FUMARATE
     Dosage: UNK
  2. LYSOMUCIL [Concomitant]
     Active Substance: ACETYLCYSTEINE
     Dosage: 600 MG, QD
  3. LINCOCIN [LINCOMYCIN HYDROCHLORIDE] [Concomitant]
  4. SINTROM [Concomitant]
     Active Substance: ACENOCOUMAROL
     Dosage: 1 MG, QD
  5. NOVONORM [Concomitant]
     Active Substance: REPAGLINIDE
     Dosage: 0.5 MG, PRN
  6. DAFALGAN [Concomitant]
     Active Substance: ACETAMINOPHEN
     Dosage: 500 MG, PRN
  7. EMCONCOR CHF [Concomitant]
     Dosage: 2.5 UNK, UNK
  8. SIMVASTATINE [Concomitant]
     Active Substance: SIMVASTATIN
  9. CONTRAMAL [Concomitant]
     Active Substance: TRAMADOL HYDROCHLORIDE
     Dosage: UNK
  10. BEFACT [CYANOCOBALAMIN,PYRIDOXINE HYDROCHLORIDE,RIBOFLAVIN,THIAMIN [Concomitant]
     Dosage: 100 MG, QD
  11. NEXAVAR [Suspect]
     Active Substance: SORAFENIB
     Indication: HEPATOCELLULAR CARCINOMA
     Dosage: 800 MG, QD
     Route: 048
     Dates: start: 20160208
  12. PANTOPRAZOLE [Concomitant]
     Active Substance: PANTOPRAZOLE SODIUM
     Dosage: 20 MG, BID

REACTIONS (12)
  - Epistaxis [Not Recovered/Not Resolved]
  - Asthenia [Not Recovered/Not Resolved]
  - Diarrhoea [Not Recovered/Not Resolved]
  - Weight decreased [None]
  - Encephalopathy [Recovered/Resolved]
  - Fatigue [None]
  - Decreased appetite [None]
  - Blood disorder [Unknown]
  - Confusional state [None]
  - Pruritus [None]
  - Weight decreased [None]
  - Rash [None]

NARRATIVE: CASE EVENT DATE: 20160212
